FAERS Safety Report 10378712 (Version 1)
Quarter: 2014Q3

REPORT INFORMATION
  Report Type: Spontaneous
  Country: US (occurrence: None)
  Receive Date: 20140811
  Receipt Date: 20140811
  Transmission Date: 20150326
  Serious: Yes (Congenital Anomaly)
  Sender: FDA-Public Use
  Company Number: None

PATIENT
  Age: 31 Year
  Sex: Female
  Weight: 145.15 kg

DRUGS (3)
  1. CLOMID [Suspect]
     Active Substance: CLOMIPHENE CITRATE
     Indication: POLYCYSTIC OVARIES
     Dosage: 6 PILLS ONCE DAILY TAKEN BY MOUTH
     Route: 048
     Dates: start: 20130610, end: 20130830
  2. CLOMID [Suspect]
     Active Substance: CLOMIPHENE CITRATE
     Indication: INFERTILITY
     Dosage: 6 PILLS ONCE DAILY TAKEN BY MOUTH
     Route: 048
     Dates: start: 20130610, end: 20130830
  3. CLOMID [Suspect]
     Active Substance: CLOMIPHENE CITRATE
     Indication: ENDOMETRIOSIS
     Dosage: 6 PILLS ONCE DAILY TAKEN BY MOUTH
     Route: 048
     Dates: start: 20130610, end: 20130830

REACTIONS (4)
  - Patent ductus arteriosus [None]
  - Coarctation of the aorta [None]
  - Bicuspid aortic valve [None]
  - Spina bifida [None]

NARRATIVE: CASE EVENT DATE: 20140716
